FAERS Safety Report 15432057 (Version 3)
Quarter: 2022Q2

REPORT INFORMATION
  Report Type: Spontaneous
  Country: TR (occurrence: TR)
  Receive Date: 20180926
  Receipt Date: 20220406
  Transmission Date: 20220721
  Serious: Yes (Other)
  Sender: FDA-Public Use
  Company Number: TR-SHIRE-TR201834206

PATIENT
  Age: 14 Year
  Sex: Female

DRUGS (3)
  1. CINRYZE [Suspect]
     Active Substance: HUMAN C1-ESTERASE INHIBITOR
     Indication: Hereditary angioedema with C1 esterase inhibitor deficiency
     Dosage: UNK UNK, 2/WEEK
     Route: 042
  2. CINRYZE [Suspect]
     Active Substance: HUMAN C1-ESTERASE INHIBITOR
     Indication: Hereditary angioedema with C1 esterase inhibitor deficiency
     Dosage: UNK UNK, 2/WEEK
     Route: 042
  3. CINRYZE [Suspect]
     Active Substance: HUMAN C1-ESTERASE INHIBITOR
     Indication: Hereditary angioedema with C1 esterase inhibitor deficiency
     Dosage: UNK UNK, 2/WEEK
     Route: 042

REACTIONS (3)
  - Hereditary angioedema [Unknown]
  - Injection site discomfort [Unknown]
  - Vein disorder [Unknown]
